FAERS Safety Report 24302596 (Version 1)
Quarter: 2024Q3

REPORT INFORMATION
  Report Type: Other
  Country: US (occurrence: US)
  Receive Date: 20240910
  Receipt Date: 20240910
  Transmission Date: 20241017
  Serious: Yes (Hospitalization)
  Sender: CHEMI SPA
  Company Number: US-CHEMI SPA-2161429

PATIENT
  Age: 26 Year
  Sex: Female

DRUGS (5)
  1. DECITABINE [Suspect]
     Active Substance: DECITABINE
     Indication: Acute myeloid leukaemia
  2. VENETOCLAX [Suspect]
     Active Substance: VENETOCLAX
  3. ACYCLOVIR [Concomitant]
     Active Substance: ACYCLOVIR
  4. LEVOFLOXACIN [Concomitant]
     Active Substance: LEVOFLOXACIN
  5. POSACONAZOLE [Concomitant]
     Active Substance: POSACONAZOLE

REACTIONS (2)
  - Fusarium infection [Recovered/Resolved]
  - Escherichia bacteraemia [Recovered/Resolved]
